FAERS Safety Report 15965044 (Version 1)
Quarter: 2019Q1

REPORT INFORMATION
  Report Type: Spontaneous
  Country: GB (occurrence: GB)
  Receive Date: 20190215
  Receipt Date: 20190215
  Transmission Date: 20190418
  Serious: Yes (Disabling)
  Sender: FDA-Public Use
  Company Number: GB-ACCORD-106624

PATIENT
  Age: 51 Year
  Sex: Male
  Weight: 87 kg

DRUGS (10)
  1. BALNEUM [Concomitant]
     Dosage: APPLY
     Dates: start: 20180105
  2. LANSOPRAZOLE. [Concomitant]
     Active Substance: LANSOPRAZOLE
     Dosage: EACH MORNING
     Dates: start: 20180105
  3. HYDROXYZINE [Concomitant]
     Active Substance: HYDROXYZINE HYDROCHLORIDE
     Dosage: AT NIGHT
     Dates: start: 20180326, end: 20180423
  4. ATORVASTATIN/ATORVASTATIN CALCIUM [Suspect]
     Active Substance: ATORVASTATIN CALCIUM
     Indication: PRODUCT USED FOR UNKNOWN INDICATION
     Dates: start: 20180515
  5. HYPROMELLOSE/HYPROMELLOSE PHTHALATE [Concomitant]
     Dates: start: 20180105
  6. MELATONIN [Concomitant]
     Active Substance: MELATONIN
     Dosage: NOCTE, AS PER HOSPITAL
     Dates: start: 20180105
  7. LOSARTAN. [Concomitant]
     Active Substance: LOSARTAN
     Dates: start: 20180105
  8. AMLODIPINE [Concomitant]
     Active Substance: AMLODIPINE BESYLATE
     Dates: start: 20180105
  9. FEXOFENADINE/FEXOFENADINE HYDROCHLORIDE [Concomitant]
     Dates: start: 20180426
  10. ALVERINE [Concomitant]
     Active Substance: ALVERINE
     Dosage: 1-3 TIMES A DAY
     Dates: start: 20180105

REACTIONS (1)
  - Urticaria chronic [Recovering/Resolving]

NARRATIVE: CASE EVENT DATE: 20180619
